FAERS Safety Report 5166859-8 (Version None)
Quarter: 2006Q4

REPORT INFORMATION
  Report Type: 
  Country: None (occurrence: None)
  Receive Date: 20061129
  Receipt Date: 20061116
  Transmission Date: 20070319
  Serious: Yes (Other)
  Sender: FDA-Public Use
  Company Number: 2006143341

PATIENT
  Sex: Male
  Weight: 126 kg

DRUGS (4)
  1. LIPITOR [Suspect]
     Indication: HYPERCHOLESTEROLAEMIA
     Dosage: 10 MG 10 MG, 1 IN 1 D), ORAL
     Route: 048
     Dates: start: 20000111, end: 20051010
  2. PERINDOPRIL ERBUMINE [Concomitant]
  3. METFORMIN HCL [Concomitant]
  4. AMARYL [Concomitant]

REACTIONS (6)
  - BLOOD PRESSURE INCREASED [None]
  - FALL [None]
  - LIMB INJURY [None]
  - MYOSITIS [None]
  - RHABDOMYOLYSIS [None]
  - WEIGHT DECREASED [None]
